FAERS Safety Report 23141698 (Version 3)
Quarter: 2024Q3

REPORT INFORMATION
  Report Type: Report from Study
  Country: US (occurrence: US)
  Receive Date: 20231103
  Receipt Date: 20240806
  Transmission Date: 20241017
  Serious: Yes (Hospitalization, Other)
  Sender: JAZZ
  Company Number: US-JAZZ PHARMACEUTICALS-2023-US-022192

PATIENT
  Sex: Female

DRUGS (3)
  1. EPIDIOLEX [Suspect]
     Active Substance: CANNABIDIOL
     Indication: Infantile spasms
     Dosage: 0.4 ML 2 TIMES A DAY FOR 1 WEEK THEN 0.8 ML TWICE DAILY THEREAFTER
     Route: 048
     Dates: start: 202309
  2. EPIDIOLEX [Suspect]
     Active Substance: CANNABIDIOL
     Indication: Epilepsy
     Dosage: 1.5 MILLILITER, BID
     Dates: start: 202309
  3. EPIDIOLEX [Suspect]
     Active Substance: CANNABIDIOL
     Indication: Lennox-Gastaut syndrome
     Dosage: 1.5 MILLILITER, BID, GTUBE
     Dates: start: 202309

REACTIONS (5)
  - Urinary tract infection [Unknown]
  - Surgery [Unknown]
  - Seizure [Unknown]
  - Seizure [Unknown]
  - Off label use [Unknown]
